FAERS Safety Report 7767411-8 (Version None)
Quarter: 2011Q3

REPORT INFORMATION
  Report Type: 
  Country: None (occurrence: None)
  Receive Date: 20110922
  Receipt Date: 20110513
  Transmission Date: 20111222
  Serious: No
  Sender: FDA-Public Use
  Company Number: US-ASTRAZENECA-2011SE15591

PATIENT
  Age: 44 Year
  Sex: Female
  Weight: 68.9 kg

DRUGS (7)
  1. SINGULAIR [Concomitant]
     Route: 065
  2. KLONOPIN [Concomitant]
     Route: 065
  3. PROVENTIL INHALER AND NEBULIZER [Concomitant]
     Route: 065
  4. CYMBALTA [Concomitant]
     Route: 065
  5. AMITRIPTYLINE HCL [Concomitant]
     Route: 065
  6. ADVAIR DISKUS 100/50 [Concomitant]
     Route: 065
  7. SEROQUEL XR [Suspect]
     Indication: BIPOLAR DISORDER
     Route: 048
     Dates: start: 20080101, end: 20110304

REACTIONS (7)
  - INSOMNIA [None]
  - DRUG DOSE OMISSION [None]
  - JOINT DISLOCATION [None]
  - THERAPEUTIC RESPONSE UNEXPECTED [None]
  - WEIGHT INCREASED [None]
  - INCREASED APPETITE [None]
  - FATIGUE [None]
